FAERS Safety Report 18580997 (Version 2)
Quarter: 2021Q1

REPORT INFORMATION
  Report Type: Report from Study
  Country: US (occurrence: US)
  Receive Date: 20201204
  Receipt Date: 20210209
  Transmission Date: 20210419
  Serious: No
  Sender: FDA-Public Use
  Company Number: US-ALLERGAN-2046724US

PATIENT
  Age: 53 Year
  Sex: Male
  Weight: 85.8 kg

DRUGS (5)
  1. CARIPRAZINE HCL 4.5MG CAP (TBD) [Suspect]
     Active Substance: CARIPRAZINE HYDROCHLORIDE
     Dosage: 3 MG, QD
     Route: 048
     Dates: start: 20201008, end: 20201014
  2. CARIPRAZINE HCL 4.5MG CAP (TBD) [Suspect]
     Active Substance: CARIPRAZINE HYDROCHLORIDE
     Indication: SCHIZOPHRENIA
     Dosage: 4.5 MG, QD
     Route: 048
     Dates: start: 20201015, end: 20201123
  3. CARIPRAZINE HCL 4.5MG CAP (TBD) [Suspect]
     Active Substance: CARIPRAZINE HYDROCHLORIDE
     Dosage: 1.5 MG, QD
     Route: 048
     Dates: start: 20201001, end: 20201008
  4. LIPITOR [Concomitant]
     Active Substance: ATORVASTATIN CALCIUM
     Indication: HYPERCHOLESTEROLAEMIA
     Dosage: 10 MG, QD
     Route: 048
     Dates: start: 202008
  5. COGENTIN [Concomitant]
     Active Substance: BENZTROPINE MESYLATE
     Indication: TREMOR
     Dosage: 1 MG, BID
     Route: 048
     Dates: start: 20201029

REACTIONS (2)
  - Cataract cortical [Recovered/Resolved]
  - Visual acuity reduced [Recovered/Resolved]

NARRATIVE: CASE EVENT DATE: 20201125
